FAERS Safety Report 7419744-2 (Version None)
Quarter: 2011Q2

REPORT INFORMATION
  Report Type: 
  Country: None (occurrence: None)
  Receive Date: 20110412
  Receipt Date: 20110412
  Transmission Date: 20111010
  Serious: Yes (Other)
  Sender: FDA-Public Use
  Company Number: None

PATIENT
  Age: 11 Year
  Sex: Male
  Weight: 40.8237 kg

DRUGS (2)
  1. FLOVENT DISKUS 100 [Suspect]
     Indication: ASTHMA
     Dosage: 100 MCG ONCE A DAY INHAL
     Route: 055
     Dates: start: 20110315
  2. AMITRIPTYLINE 5 MG [Suspect]
     Indication: MIGRAINE
     Dosage: 5 MG ONCE A DAY PO
     Route: 048

REACTIONS (8)
  - CHILLS [None]
  - ANXIETY [None]
  - EDUCATIONAL PROBLEM [None]
  - HEADACHE [None]
  - DEPRESSION [None]
  - INSOMNIA [None]
  - AKATHISIA [None]
  - MUSCLE RIGIDITY [None]
